FAERS Safety Report 19765071 (Version 1)
Quarter: 2021Q3

REPORT INFORMATION
  Report Type: Spontaneous
  Country: US (occurrence: US)
  Receive Date: 20210830
  Receipt Date: 20210830
  Transmission Date: 20211014
  Serious: No
  Sender: FDA-Public Use
  Company Number: US-ENDO PHARMACEUTICALS INC-2021-010564

PATIENT

DRUGS (2)
  1. BREVITAL SODIUM [Suspect]
     Active Substance: METHOHEXITAL SODIUM
     Indication: SEDATIVE THERAPY
     Dosage: 100 MG, SINGLE
     Route: 065
     Dates: start: 2021, end: 2021
  2. BREVITAL SODIUM [Suspect]
     Active Substance: METHOHEXITAL SODIUM
     Dosage: UNK UNKNOWN, SINGLE (DOSE INCREASED FOR TWO LEVELS)
     Route: 065
     Dates: start: 2021, end: 2021

REACTIONS (1)
  - Drug ineffective [Not Recovered/Not Resolved]

NARRATIVE: CASE EVENT DATE: 2021
